FAERS Safety Report 9268917 (Version 1)
Quarter: 2013Q2

REPORT INFORMATION
  Report Type: Report from Study
  Country: BA (occurrence: BA)
  Receive Date: 20130503
  Receipt Date: 20130503
  Transmission Date: 20140414
  Serious: Yes (Death, Other)
  Sender: FDA-Public Use
  Company Number: BA-ROCHE-1219657

PATIENT
  Sex: Male

DRUGS (3)
  1. AVASTIN [Suspect]
     Indication: COLORECTAL CANCER METASTATIC
     Route: 042
  2. XELODA [Suspect]
     Indication: COLORECTAL CANCER METASTATIC
     Route: 048
  3. IRINOTECAN [Concomitant]

REACTIONS (2)
  - Disease progression [Fatal]
  - Febrile neutropenia [Unknown]
